FAERS Safety Report 11400595 (Version 1)
Quarter: 2015Q3

REPORT INFORMATION
  Report Type: Spontaneous
  Country: US (occurrence: US)
  Receive Date: 20150820
  Receipt Date: 20150820
  Transmission Date: 20151125
  Serious: Yes (Hospitalization)
  Sender: FDA-Public Use
  Company Number: US-PFIZER INC-2015267370

PATIENT
  Age: 67 Year
  Sex: Male
  Weight: 55 kg

DRUGS (12)
  1. DEXAMETHASONE. [Concomitant]
     Active Substance: DEXAMETHASONE
     Dosage: UNK
  2. ACETAMINOPHEN. [Concomitant]
     Active Substance: ACETAMINOPHEN
     Dosage: UNK
  3. MORPHINE SULPHATE [Concomitant]
     Active Substance: MORPHINE SULFATE
     Dosage: UNK
  4. TORISEL [Suspect]
     Active Substance: TEMSIROLIMUS
     Indication: METASTATIC RENAL CELL CARCINOMA
     Dosage: 25 MG, UNK
     Route: 042
     Dates: start: 20150701, end: 20150701
  5. MS CONTIN [Concomitant]
     Active Substance: MORPHINE SULFATE
     Dosage: UNK
  6. HYDROCODONE [Concomitant]
     Active Substance: HYDROCODONE
     Dosage: UNK
  7. TORISEL [Suspect]
     Active Substance: TEMSIROLIMUS
     Dosage: 25 MG, UNK
     Route: 042
     Dates: start: 20150714, end: 20150714
  8. ONDANSETRON HCL [Concomitant]
     Active Substance: ONDANSETRON HYDROCHLORIDE
     Dosage: UNK
  9. PROMETHAZINE [Concomitant]
     Active Substance: PROMETHAZINE\PROMETHAZINE HYDROCHLORIDE
     Dosage: UNK
  10. MEGESTROL ACETATE. [Concomitant]
     Active Substance: MEGESTROL ACETATE
     Dosage: UNK
  11. TORISEL [Suspect]
     Active Substance: TEMSIROLIMUS
     Dosage: 25 MG, UNK
     Route: 042
     Dates: start: 20150707, end: 20150707
  12. CLONAZEPAM. [Concomitant]
     Active Substance: CLONAZEPAM
     Dosage: UNK

REACTIONS (8)
  - Hypotension [Unknown]
  - Dysphagia [Unknown]
  - Confusional state [Unknown]
  - Dysarthria [Unknown]
  - Dehydration [Unknown]
  - Tachycardia [Unknown]
  - Hallucination [Unknown]
  - Hypophagia [Unknown]

NARRATIVE: CASE EVENT DATE: 201507
